FAERS Safety Report 4562987-6 (Version None)
Quarter: 2005Q1

REPORT INFORMATION
  Report Type: 
  Country: None (occurrence: None)
  Receive Date: 20050121
  Receipt Date: 20041227
  Transmission Date: 20050727
  Serious: Yes (Hospitalization)
  Sender: FDA-Public Use
  Company Number: EWC041241617

PATIENT
  Age: 64 Year
  Sex: Female
  Weight: 64 kg

DRUGS (6)
  1. FORTEO [Suspect]
     Indication: OSTEOPOROSIS
     Dosage: 20 UG/1 DAY
     Dates: start: 20040329, end: 20041021
  2. NATECAL (CALCIUM CARBONATE) [Concomitant]
  3. LOSARTAN [Concomitant]
  4. STATIN NOS [Concomitant]
  5. DEURSIL (URSODEOXYCHOLIC ACID) [Concomitant]
  6. PARIET (REBEPRAZOLE SODIUM) [Concomitant]

REACTIONS (3)
  - BLOOD ALKALINE PHOSPHATASE INCREASED [None]
  - GAMMA-GLUTAMYLTRANSFERASE INCREASED [None]
  - PANCREATITIS ACUTE [None]
